FAERS Safety Report 5017085-4 (Version None)
Quarter: 2006Q2

REPORT INFORMATION
  Report Type: 
  Country: None (occurrence: None)
  Receive Date: 20060525
  Receipt Date: 20060503
  Transmission Date: 20061013
  Serious: Yes (Hospitalization, Other)
  Sender: FDA-Public Use
  Company Number: US200605000759

PATIENT
  Sex: Female

DRUGS (6)
  1. ZYPREXA [Suspect]
     Indication: DEMENTIA ALZHEIMER'S TYPE
     Dosage: 10 MG DAILY (1/D)
     Dates: start: 20060414, end: 20060401
  2. ATIVAN [Concomitant]
  3. ZOCOR [Concomitant]
  4. ASPIRIN [Concomitant]
  5. MULTIVIT (VITAMINS NOS) [Concomitant]
  6. MEMANTINE HCL [Concomitant]

REACTIONS (12)
  - AGGRESSION [None]
  - CEREBROVASCULAR ACCIDENT [None]
  - DEHYDRATION [None]
  - DROOLING [None]
  - GENERAL PHYSICAL HEALTH DETERIORATION [None]
  - LOSS OF CONSCIOUSNESS [None]
  - OEDEMA PERIPHERAL [None]
  - PHYSICAL ASSAULT [None]
  - PNEUMONIA [None]
  - POSTURE ABNORMAL [None]
  - RESTLESSNESS [None]
  - URINARY TRACT INFECTION [None]
